FAERS Safety Report 8965181 (Version 1)
Quarter: 2012Q4

REPORT INFORMATION
  Report Type: 
  Country: US (occurrence: US)
  Receive Date: 20121213
  Receipt Date: 20121213
  Transmission Date: 20130627
  Serious: Yes (Other)
  Sender: FDA-Public Use
  Company Number: US-BRISTOL-MYERS SQUIBB COMPANY-16378762

PATIENT
  Sex: Female

DRUGS (1)
  1. IXEMPRA [Suspect]
     Dosage: Approx one or two days ago,second dose received
     Dates: start: 20111206

REACTIONS (4)
  - Muscular weakness [Not Recovered/Not Resolved]
  - Muscle spasms [Not Recovered/Not Resolved]
  - Hypersensitivity [Recovered/Resolved]
  - Blood potassium decreased [Not Recovered/Not Resolved]
